FAERS Safety Report 11602137 (Version 1)
Quarter: 2015Q4

REPORT INFORMATION
  Report Type: Spontaneous
  Country: US (occurrence: US)
  Receive Date: 20151006
  Receipt Date: 20151006
  Transmission Date: 20160304
  Serious: No
  Sender: FDA-Public Use
  Company Number: US-AMGEN-USASP2015040149

PATIENT
  Sex: Female

DRUGS (1)
  1. PROLIA [Suspect]
     Active Substance: DENOSUMAB
     Indication: PRODUCT USED FOR UNKNOWN INDICATION
     Dosage: UNK
     Route: 065

REACTIONS (9)
  - Insomnia [Unknown]
  - Pruritus [Unknown]
  - Body temperature abnormal [Unknown]
  - Adverse drug reaction [Unknown]
  - Pain [Unknown]
  - Bladder disorder [Not Recovered/Not Resolved]
  - Eye disorder [Unknown]
  - Joint lock [Unknown]
  - Jaw disorder [Unknown]
